FAERS Safety Report 7723482-6 (Version None)
Quarter: 2011Q3

REPORT INFORMATION
  Report Type: 
  Country: None (occurrence: None)
  Receive Date: 20110901
  Receipt Date: 20110826
  Transmission Date: 20111222
  Serious: Yes (Other)
  Sender: FDA-Public Use
  Company Number: US-PFIZER INC-2011199678

PATIENT
  Sex: Female
  Weight: 58.957 kg

DRUGS (3)
  1. CELEBREX [Suspect]
     Indication: ARTHRITIS
     Dosage: 200 MG, DAILY
     Route: 048
     Dates: start: 20110825
  2. VICODIN [Suspect]
     Indication: ARTHRITIS
     Dosage: UNK
  3. ZOLOFT [Suspect]
     Indication: DEPRESSION
     Dosage: 50 MG, 2X/DAY
     Route: 048

REACTIONS (2)
  - DEPRESSION [None]
  - BALANCE DISORDER [None]
